FAERS Safety Report 7769184-1 (Version None)
Quarter: 2011Q3

REPORT INFORMATION
  Report Type: 
  Country: None (occurrence: None)
  Receive Date: 20110922
  Receipt Date: 20110913
  Transmission Date: 20111222
  Serious: Yes (Hospitalization)
  Sender: FDA-Public Use
  Company Number: US-GENZYME-US-2006-019007

PATIENT
  Sex: Female

DRUGS (15)
  1. METHYLPREDNISOLONE SODIUM SUCCINATE [Concomitant]
     Indication: PREMEDICATION
     Dosage: 1 G, QDX3
     Route: 042
     Dates: start: 20040419, end: 20040421
  2. CAMPATH [Suspect]
     Indication: MULTIPLE SCLEROSIS
     Dosage: 24 MG, QDX5
     Route: 042
     Dates: start: 20040419, end: 20040423
  3. PAMELOR [Concomitant]
     Indication: PRODUCT USED FOR UNKNOWN INDICATION
     Dosage: 25 MG, UNK
  4. MULTI-VITAMINS [Concomitant]
     Indication: PRODUCT USED FOR UNKNOWN INDICATION
  5. VICODIN [Concomitant]
     Indication: PRODUCT USED FOR UNKNOWN INDICATION
     Dosage: UNK, PRN
  6. LOMOTIL [Concomitant]
     Indication: PRODUCT USED FOR UNKNOWN INDICATION
     Dosage: UNK, PRN
  7. TIZANIDINE HCL [Concomitant]
     Indication: PRODUCT USED FOR UNKNOWN INDICATION
     Dosage: 4 MG, UNK
  8. ANTIBIOTICS [Concomitant]
     Indication: PRODUCT USED FOR UNKNOWN INDICATION
  9. LEXAPRO [Concomitant]
     Indication: PRODUCT USED FOR UNKNOWN INDICATION
     Dosage: 20 MG, UNK
  10. MIRAPEX ^PHARMACIA + UPJOHN^ [Concomitant]
     Indication: PRODUCT USED FOR UNKNOWN INDICATION
     Dosage: 0.5 MG, UNK
  11. METHYLPREDNISOLONE SODIUM SUCCINATE [Concomitant]
     Dosage: 1 G, QDX3
     Route: 042
     Dates: start: 20050517, end: 20050519
  12. DITROPAN XL [Concomitant]
     Indication: PRODUCT USED FOR UNKNOWN INDICATION
     Dosage: 10 MG, UNK
  13. IMITREX ^GLAXO^ [Concomitant]
     Indication: PRODUCT USED FOR UNKNOWN INDICATION
     Dosage: UNK, PRN
  14. XANAX [Concomitant]
     Indication: PRODUCT USED FOR UNKNOWN INDICATION
     Dosage: UNK, PRN
  15. CAMPATH [Suspect]
     Dosage: 24 MG/D X 3 DAYS
     Route: 042
     Dates: start: 20050517, end: 20050519

REACTIONS (20)
  - VENOUS THROMBOSIS LIMB [None]
  - DIARRHOEA [None]
  - PSEUDOMONAS TEST POSITIVE [None]
  - DEEP VEIN THROMBOSIS [None]
  - FRUSTRATION [None]
  - DEPRESSION [None]
  - COAGULOPATHY [None]
  - ENTEROBACTER TEST POSITIVE [None]
  - MENTAL STATUS CHANGES [None]
  - DECUBITUS ULCER [None]
  - HAEMATURIA [None]
  - BODY TEMPERATURE INCREASED [None]
  - OSTEOMYELITIS [None]
  - OSTEOMYELITIS BACTERIAL [None]
  - INFECTED SKIN ULCER [None]
  - ANAEMIA [None]
  - RETROPERITONEAL HAEMORRHAGE [None]
  - STAPHYLOCOCCUS TEST POSITIVE [None]
  - ENTEROCOCCUS TEST POSITIVE [None]
  - INTERNATIONAL NORMALISED RATIO INCREASED [None]
